FAERS Safety Report 5234058-7 (Version None)
Quarter: 2007Q1

REPORT INFORMATION
  Report Type: 
  Country: None (occurrence: None)
  Receive Date: 20070208
  Receipt Date: 20070129
  Transmission Date: 20070707
  Serious: Yes (Hospitalization, Disabling)
  Sender: FDA-Public Use
  Company Number: JP-PFIZER INC-2007003213

PATIENT
  Sex: Male
  Weight: 53 kg

DRUGS (13)
  1. ZYVOX [Suspect]
     Indication: STAPHYLOCOCCAL SEPSIS
     Route: 042
     Dates: start: 20061115, end: 20061228
  2. ZYVOX [Suspect]
     Indication: STAPHYLOCOCCAL SEPSIS
     Route: 048
     Dates: start: 20061229, end: 20070106
  3. VALSARTAN [Concomitant]
     Route: 048
  4. DIART [Concomitant]
     Route: 048
  5. ALDACTONE [Concomitant]
     Route: 048
  6. RENIVACE [Concomitant]
     Route: 048
  7. MUCOSTA [Concomitant]
     Route: 048
  8. SIGMART [Concomitant]
     Route: 048
  9. ASPIRIN [Concomitant]
     Route: 048
  10. LIPITOR [Concomitant]
     Route: 048
  11. TAKEPRON [Concomitant]
     Route: 048
  12. HABEKACIN [Concomitant]
  13. UNASYN [Concomitant]
     Route: 042

REACTIONS (2)
  - BLOOD CREATININE INCREASED [None]
  - NEUROPATHY PERIPHERAL [None]
